FAERS Safety Report 11830050 (Version 2)
Quarter: 2016Q1

REPORT INFORMATION
  Report Type: Report from Study
  Country: US (occurrence: US)
  Receive Date: 20151213
  Receipt Date: 20160223
  Transmission Date: 20160525
  Serious: Yes (Hospitalization)
  Sender: FDA-Public Use
  Company Number: US-BIOGEN-2015BI130026

PATIENT
  Age: 58 Year
  Sex: Female

DRUGS (2)
  1. TYSABRI [Suspect]
     Active Substance: NATALIZUMAB
     Route: 042
     Dates: start: 20150914, end: 20150914
  2. TYSABRI [Suspect]
     Active Substance: NATALIZUMAB
     Indication: MULTIPLE SCLEROSIS
     Route: 042
     Dates: start: 20090625, end: 20110526

REACTIONS (6)
  - Urinary tract infection [Recovered/Resolved]
  - Musculoskeletal disorder [Recovered/Resolved]
  - Sensory disturbance [Recovered/Resolved]
  - Speech disorder [Recovered/Resolved]
  - Unresponsive to stimuli [Recovered/Resolved]
  - Urine abnormality [Recovered/Resolved]

NARRATIVE: CASE EVENT DATE: 201509
